FAERS Safety Report 20973173 (Version 2)
Quarter: 2022Q3

REPORT INFORMATION
  Report Type: Spontaneous
  Country: US (occurrence: None)
  Receive Date: 20220617
  Receipt Date: 20220803
  Transmission Date: 20221027
  Serious: No
  Sender: FDA-Public Use
  Company Number: 2022A214430

PATIENT
  Age: 21405 Day
  Sex: Female

DRUGS (1)
  1. FASENRA [Suspect]
     Active Substance: BENRALIZUMAB
     Indication: Asthma
     Dosage: 30MG/ML MONTHLY
     Route: 058
     Dates: start: 2021

REACTIONS (8)
  - Illness [Unknown]
  - Dyspnoea [Unknown]
  - Asthma [Unknown]
  - Feeling abnormal [Unknown]
  - Cough [Unknown]
  - Product dose omission issue [Unknown]
  - Product use issue [Unknown]
  - Device leakage [Unknown]

NARRATIVE: CASE EVENT DATE: 20220603
